FAERS Safety Report 5389916-X (Version None)
Quarter: 2007Q3

REPORT INFORMATION
  Report Type: 
  Country: None (occurrence: None)
  Receive Date: 20070718
  Receipt Date: 20070709
  Transmission Date: 20080115
  Serious: Yes (Other)
  Sender: FDA-Public Use
  Company Number: US-JNJFOC-20070702278

PATIENT
  Sex: Female
  Weight: 81.65 kg

DRUGS (6)
  1. FENTANYL TRANSDERMAL SYSTEM [Suspect]
     Indication: CONNECTIVE TISSUE DISORDER
     Route: 062
  2. FENTANYL TRANSDERMAL SYSTEM [Suspect]
     Indication: INTERVERTEBRAL DISC DEGENERATION
     Route: 062
  3. PREDNISONE [Concomitant]
     Route: 048
  4. TENORMIN [Concomitant]
     Indication: BLOOD PRESSURE
     Route: 048
  5. PERCOCET [Concomitant]
     Indication: PAIN
     Route: 048
  6. MORPHINE [Concomitant]
     Indication: PAIN
     Route: 037

REACTIONS (6)
  - BIOPSY COLON ABNORMAL [None]
  - DEVICE LEAKAGE [None]
  - INSOMNIA [None]
  - JAW DISORDER [None]
  - MALAISE [None]
  - PHARMACEUTICAL PRODUCT COMPLAINT [None]
